FAERS Safety Report 12550347 (Version 4)
Quarter: 2017Q2

REPORT INFORMATION
  Report Type: Spontaneous
  Country: US (occurrence: US)
  Receive Date: 20160712
  Receipt Date: 20170621
  Transmission Date: 20170830
  Serious: Yes (Hospitalization)
  Sender: FDA-Public Use
  Company Number: US-SA-2016SA120641

PATIENT
  Age: 39 Year
  Sex: Female
  Weight: 97.52 kg

DRUGS (13)
  1. AUBAGIO [Suspect]
     Active Substance: TERIFLUNOMIDE
     Indication: MULTIPLE SCLEROSIS
     Route: 048
     Dates: start: 20160517, end: 20170612
  2. NEURONTIN [Concomitant]
     Active Substance: GABAPENTIN
  3. LISINOPRIL. [Concomitant]
     Active Substance: LISINOPRIL
  4. AUBAGIO [Suspect]
     Active Substance: TERIFLUNOMIDE
     Indication: MULTIPLE SCLEROSIS
     Route: 048
     Dates: start: 20160517, end: 20170612
  5. LAMICTAL [Concomitant]
     Active Substance: LAMOTRIGINE
  6. CLARITIN [Concomitant]
     Active Substance: LORATADINE
  7. FLURBIPROFEN. [Concomitant]
     Active Substance: FLURBIPROFEN
  8. DITROPAN [Concomitant]
     Active Substance: OXYBUTYNIN CHLORIDE
  9. AUBAGIO [Suspect]
     Active Substance: TERIFLUNOMIDE
     Indication: MULTIPLE SCLEROSIS
     Route: 048
     Dates: start: 20160517, end: 20170612
  10. FLONASE [Concomitant]
     Active Substance: FLUTICASONE PROPIONATE
  11. SINGULAIR [Concomitant]
     Active Substance: MONTELUKAST SODIUM
  12. NORVASC [Concomitant]
     Active Substance: AMLODIPINE BESYLATE
  13. LIPITOR [Concomitant]
     Active Substance: ATORVASTATIN CALCIUM

REACTIONS (6)
  - Seizure [Unknown]
  - Hepatic enzyme increased [Not Recovered/Not Resolved]
  - Fall [Unknown]
  - Injury [Unknown]
  - Dry skin [Unknown]
  - Pruritus [Unknown]

NARRATIVE: CASE EVENT DATE: 201605
